FAERS Safety Report 20392099 (Version 1)
Quarter: 2022Q1

REPORT INFORMATION
  Report Type: Spontaneous
  Country: JP (occurrence: JP)
  Receive Date: 20220128
  Receipt Date: 20220128
  Transmission Date: 20220423
  Serious: Yes (Hospitalization)
  Sender: FDA-Public Use
  Company Number: JP-Eisai-202111022_LEN_P_1

PATIENT
  Age: 49 Year
  Sex: Female

DRUGS (4)
  1. LENVATINIB [Suspect]
     Active Substance: LENVATINIB
     Indication: Papillary thyroid cancer
     Route: 048
     Dates: start: 201811, end: 201901
  2. LENVATINIB [Suspect]
     Active Substance: LENVATINIB
     Dates: start: 201902, end: 201905
  3. LENVATINIB [Suspect]
     Active Substance: LENVATINIB
     Dates: start: 201905, end: 201908
  4. LENVATINIB [Suspect]
     Active Substance: LENVATINIB
     Dosage: 5 DAYS ON/ 2 DAYS OFF
     Dates: start: 202010, end: 202103

REACTIONS (4)
  - Hypocalcaemia [Unknown]
  - Blood pressure increased [Unknown]
  - Decreased appetite [Unknown]
  - Vomiting [Unknown]

NARRATIVE: CASE EVENT DATE: 20190101
